FAERS Safety Report 22066994 (Version 1)
Quarter: 2023Q1

REPORT INFORMATION
  Report Type: Spontaneous
  Country: US (occurrence: US)
  Receive Date: 20230306
  Receipt Date: 20230306
  Transmission Date: 20230417
  Serious: No
  Sender: FDA-Public Use
  Company Number: US-PLXPHARMA-2022-PLX-00067

PATIENT
  Sex: Female

DRUGS (1)
  1. VAZALORE [Suspect]
     Active Substance: ASPIRIN
     Indication: Headache
     Dosage: SEVERAL TIME
     Route: 048

REACTIONS (1)
  - Therapeutic product effect incomplete [Unknown]
